FAERS Safety Report 6255960-3 (Version None)
Quarter: 2009Q3

REPORT INFORMATION
  Report Type: 
  Country: None (occurrence: None)
  Receive Date: 20090706
  Receipt Date: 20090625
  Transmission Date: 20100115
  Serious: Yes (Hospitalization, Other)
  Sender: FDA-Public Use
  Company Number: JP-BRISTOL-MYERS SQUIBB COMPANY-14661532

PATIENT
  Age: 62 Year
  Sex: Male
  Weight: 56 kg

DRUGS (13)
  1. ABILIFY [Suspect]
     Indication: SCHIZOPHRENIA
     Route: 048
     Dates: start: 20090514, end: 20090517
  2. ABILIFY [Suspect]
     Indication: HALLUCINATION
     Route: 048
     Dates: start: 20090514, end: 20090517
  3. ABILIFY [Suspect]
     Indication: DELUSION
     Route: 048
     Dates: start: 20090514, end: 20090517
  4. CHLORPROMAZINE [Suspect]
     Indication: HALLUCINATION
     Route: 048
     Dates: start: 19720416, end: 20090519
  5. CHLORPROMAZINE [Suspect]
     Indication: DELUSION
     Route: 048
     Dates: start: 19720416, end: 20090519
  6. TRIHEXANE [Suspect]
     Indication: HALLUCINATION
     Route: 048
     Dates: start: 19720416, end: 20090519
  7. TRIHEXANE [Suspect]
     Indication: DELUSION
     Route: 048
     Dates: start: 19720416, end: 20090519
  8. LUNAPRON [Suspect]
     Indication: HALLUCINATION
     Dosage: FORM-TABS
     Route: 048
     Dates: start: 19720416, end: 20090519
  9. LUNAPRON [Suspect]
     Indication: DELUSION
     Dosage: FORM-TABS
     Route: 048
     Dates: start: 19720416, end: 20090519
  10. CERCINE [Concomitant]
     Dosage: TABS
     Dates: start: 19720416
  11. FLUNITRAZEPAM [Concomitant]
     Dosage: TABS
     Dates: start: 19720416
  12. SENNOSIDE [Concomitant]
     Dosage: TABS
     Dates: start: 19720416
  13. PENTOBARBITAL CALCIUM [Concomitant]
     Dosage: TABS
     Dates: start: 19720416

REACTIONS (5)
  - AGRANULOCYTOSIS [None]
  - DYSURIA [None]
  - ILEUS PARALYTIC [None]
  - LYMPHOCYTE COUNT INCREASED [None]
  - NEUROLEPTIC MALIGNANT SYNDROME [None]
